FAERS Safety Report 16289600 (Version 1)
Quarter: 2019Q2

REPORT INFORMATION
  Report Type: Spontaneous
  Country: US (occurrence: US)
  Receive Date: 20190509
  Receipt Date: 20190509
  Transmission Date: 20190711
  Serious: Yes (Hospitalization)
  Sender: FDA-Public Use
  Company Number: US-ROCHE-2314426

PATIENT
  Sex: Male
  Weight: 158.9 kg

DRUGS (6)
  1. TAMSULOSIN HCL [Concomitant]
     Active Substance: TAMSULOSIN HYDROCHLORIDE
     Dosage: ONGOING: UNKNOWN
     Route: 048
     Dates: start: 20190506
  2. LISINOPRIL. [Concomitant]
     Active Substance: LISINOPRIL
     Dosage: ONGOING: UNKNOWN
     Route: 048
     Dates: start: 20190506
  3. FUROSEMIDE. [Concomitant]
     Active Substance: FUROSEMIDE
     Dosage: ONGOING: UNKNOWN
     Route: 048
     Dates: start: 20190506
  4. QUETIAPINE. [Concomitant]
     Active Substance: QUETIAPINE
     Dosage: ONGOING: UNKNOWN
     Route: 048
     Dates: start: 20190506
  5. XOLAIR [Suspect]
     Active Substance: OMALIZUMAB
     Indication: PRODUCT USED FOR UNKNOWN INDICATION
     Dosage: ONGOING: UNKNOWN
     Route: 058
     Dates: start: 20180101
  6. BUMETANIDE. [Concomitant]
     Active Substance: BUMETANIDE
     Dosage: ONGOING: UNKNOWN
     Route: 048
     Dates: start: 20190506

REACTIONS (1)
  - Condition aggravated [Recovered/Resolved]
